FAERS Safety Report 6068833-6 (Version None)
Quarter: 2009Q1

REPORT INFORMATION
  Report Type: 
  Country: None (occurrence: None)
  Receive Date: 20090203
  Receipt Date: 20090121
  Transmission Date: 20090719
  Serious: Yes (Hospitalization)
  Sender: FDA-Public Use
  Company Number: 2009AL000449

PATIENT
  Age: 50 Year
  Sex: Female

DRUGS (3)
  1. CITALOPRAM HYDROBROMIDE [Suspect]
     Indication: DEPRESSED MOOD
     Dosage: 40 MG;QD;PO
     Route: 048
     Dates: end: 20090107
  2. LITHIUM CARBONATE [Concomitant]
  3. ZOPICLONE [Suspect]

REACTIONS (7)
  - AFFECTIVE DISORDER [None]
  - AGITATION [None]
  - HYPERTENSION [None]
  - HYPERTONIA [None]
  - INSOMNIA [None]
  - RENAL IMPAIRMENT [None]
  - SEROTONIN SYNDROME [None]
